FAERS Safety Report 24802484 (Version 3)
Quarter: 2025Q2

REPORT INFORMATION
  Report Type: Spontaneous
  Country: IN (occurrence: IN)
  Receive Date: 20250103
  Receipt Date: 20250404
  Transmission Date: 20250717
  Serious: Yes (Hospitalization, Other)
  Sender: AMGEN
  Company Number: IN-AMGEN-INDSP2024255803

PATIENT
  Age: 64 Year
  Sex: Male

DRUGS (4)
  1. PANITUMUMAB [Suspect]
     Active Substance: PANITUMUMAB
     Indication: Rectal cancer metastatic
     Route: 065
  2. LEUCOVORIN [Concomitant]
     Active Substance: LEUCOVORIN\LEUCOVORIN CALCIUM
     Indication: Rectal cancer metastatic
     Route: 065
  3. FLUOROURACIL [Concomitant]
     Active Substance: FLUOROURACIL
     Indication: Rectal cancer metastatic
     Route: 065
  4. OXALIPLATIN [Concomitant]
     Active Substance: OXALIPLATIN
     Indication: Rectal cancer metastatic
     Route: 065

REACTIONS (13)
  - Urine potassium increased [Unknown]
  - Blood magnesium decreased [Recovered/Resolved]
  - Hypokalaemia [Recovered/Resolved]
  - Asthenia [Unknown]
  - Blood albumin decreased [Unknown]
  - Constipation [Unknown]
  - Anal fissure [Unknown]
  - COVID-19 [Unknown]
  - Muscular weakness [Recovered/Resolved]
  - Gait disturbance [Unknown]
  - Muscle spasms [Unknown]
  - Dyschezia [Unknown]
  - Tongue dry [Unknown]
